FAERS Safety Report 7075049-3 (Version None)
Quarter: 2010Q4

REPORT INFORMATION
  Report Type: 
  Country: None (occurrence: None)
  Receive Date: 20101029
  Receipt Date: 20100128
  Transmission Date: 20110411
  Serious: No
  Sender: FDA-Public Use
  Company Number: US-WYE-H13302810

PATIENT
  Age: 42 Year
  Sex: Male
  Weight: 63.56 kg

DRUGS (1)
  1. ADVIL PM [Suspect]
     Indication: INSOMNIA
     Dosage: 1 TO 2 CAPLETS EVERY NIGHT
     Route: 048
     Dates: start: 20090101

REACTIONS (1)
  - DRUG EFFECT DECREASED [None]
